FAERS Safety Report 6667182-2 (Version None)
Quarter: 2010Q2

REPORT INFORMATION
  Report Type: 
  Country: None (occurrence: None)
  Receive Date: 20100405
  Receipt Date: 20100326
  Transmission Date: 20101027
  Serious: Yes (Other)
  Sender: FDA-Public Use
  Company Number: TR-GENZYME-FABR-1001258

PATIENT

DRUGS (3)
  1. FABRAZYME [Suspect]
     Indication: FABRY'S DISEASE
     Dosage: 1 MG/KG, Q2W
     Route: 042
     Dates: start: 20020301, end: 20091101
  2. FABRAZYME [Suspect]
     Dosage: 50 MG, Q2W
     Route: 042
     Dates: start: 20100110
  3. ENALAPRIL MALEATE [Concomitant]
     Indication: DRUG USE FOR UNKNOWN INDICATION
     Dosage: 5 MG, QD
     Route: 042

REACTIONS (3)
  - ANAEMIA [None]
  - HYPOTENSION [None]
  - PROTEINURIA [None]
